FAERS Safety Report 6093500-2 (Version None)
Quarter: 2009Q1

REPORT INFORMATION
  Report Type: 
  Country: None (occurrence: None)
  Receive Date: 20090226
  Receipt Date: 20090219
  Transmission Date: 20090719
  Serious: Yes (Hospitalization)
  Sender: FDA-Public Use
  Company Number: FR-AVENTIS-200910643FR

PATIENT
  Age: 54 Year
  Sex: Male

DRUGS (1)
  1. TELITHROMYCINE [Suspect]

REACTIONS (3)
  - DRUG RASH WITH EOSINOPHILIA AND SYSTEMIC SYMPTOMS [None]
  - PNEUMONITIS [None]
  - STAPHYLOCOCCAL INFECTION [None]
